FAERS Safety Report 7415283-3 (Version None)
Quarter: 2011Q2

REPORT INFORMATION
  Report Type: 
  Country: None (occurrence: None)
  Receive Date: 20110414
  Receipt Date: 20110331
  Transmission Date: 20111010
  Serious: Yes (Hospitalization)
  Sender: FDA-Public Use
  Company Number: CA-JNJFOC-20110400744

PATIENT
  Sex: Female
  Weight: 59 kg

DRUGS (9)
  1. KDUR [Concomitant]
  2. PLAVIX [Concomitant]
  3. FERROUS GLUCONATE [Concomitant]
  4. REMICADE [Suspect]
     Indication: CROHN'S DISEASE
     Route: 042
  5. AMIODARONE [Concomitant]
  6. SYNTHROID [Concomitant]
  7. ADVAIR HFA [Concomitant]
  8. DILTIAZEM [Concomitant]
  9. LASIX [Concomitant]

REACTIONS (4)
  - BRONCHITIS CHRONIC [None]
  - FEMUR FRACTURE [None]
  - FALL [None]
  - OESOPHAGEAL CANDIDIASIS [None]
